FAERS Safety Report 20918198 (Version 2)
Quarter: 2022Q2

REPORT INFORMATION
  Report Type: Report from Study
  Country: CA (occurrence: CA)
  Receive Date: 20220606
  Receipt Date: 20220629
  Transmission Date: 20220720
  Serious: No
  Sender: FDA-Public Use
  Company Number: CA-ABBVIE-22K-028-4421882-00

PATIENT
  Sex: Male

DRUGS (1)
  1. RINVOQ [Suspect]
     Active Substance: UPADACITINIB
     Indication: Dermatitis atopic
     Route: 048
     Dates: start: 20220218

REACTIONS (10)
  - Erythema [Unknown]
  - Pruritus [Unknown]
  - Skin discharge [Unknown]
  - Skin odour abnormal [Unknown]
  - Dilated pores [Unknown]
  - Gout [Unknown]
  - Seborrhoea [Unknown]
  - Dry skin [Unknown]
  - Acne [Unknown]
  - Therapeutic product effect decreased [Unknown]

NARRATIVE: CASE EVENT DATE: 20220101
